FAERS Safety Report 4761506-9 (Version None)
Quarter: 2005Q3

REPORT INFORMATION
  Report Type: 
  Country: None (occurrence: None)
  Receive Date: 20050906
  Receipt Date: 20050826
  Transmission Date: 20060218
  Serious: Yes (Other)
  Sender: FDA-Public Use
  Company Number: JP-GLAXOSMITHKLINE-B0391880A

PATIENT
  Age: 52 Year
  Sex: Male

DRUGS (1)
  1. ALKERAN [Suspect]

REACTIONS (3)
  - DIARRHOEA [None]
  - HEPATITIS ACUTE [None]
  - RENAL FAILURE ACUTE [None]
